FAERS Safety Report 21141941 (Version 1)
Quarter: 2022Q3

REPORT INFORMATION
  Report Type: Spontaneous
  Country: LT (occurrence: LT)
  Receive Date: 20220728
  Receipt Date: 20220728
  Transmission Date: 20221026
  Serious: Yes (Hospitalization)
  Sender: FDA-Public Use
  Company Number: LT-ROCHE-3126410

PATIENT
  Age: 61 Year
  Sex: Female

DRUGS (42)
  1. DIAZEPAM [Suspect]
     Active Substance: DIAZEPAM
     Indication: Anxiety
     Dosage: 10 MILLIGRAM, QD (UPTO 10MG/DAY)
     Route: 065
  2. DIAZEPAM [Suspect]
     Active Substance: DIAZEPAM
     Indication: Tension
     Dosage: UPTO 10MG/DAY
  3. DIAZEPAM [Suspect]
     Active Substance: DIAZEPAM
     Indication: Tension
  4. DIAZEPAM [Suspect]
     Active Substance: DIAZEPAM
     Indication: Anxiety
  5. BROMAZEPAM [Suspect]
     Active Substance: BROMAZEPAM
     Indication: Psychotic disorder
     Dosage: UP TO 6 MG/DAY
     Route: 065
  6. OLANZAPINE [Interacting]
     Active Substance: OLANZAPINE
     Indication: Product used for unknown indication
     Dosage: 15 MILLIGRAM, QD (15 MG, PER DAY  )
     Route: 065
  7. OLANZAPINE [Interacting]
     Active Substance: OLANZAPINE
     Dosage: 2.5 MILLIGRAM, QD
     Route: 065
  8. OLANZAPINE [Interacting]
     Active Substance: OLANZAPINE
     Dosage: 10 MILLIGRAM, QD (10 MG, PER DAY )
     Route: 065
  9. LEVODOPA [Suspect]
     Active Substance: LEVODOPA
     Indication: Parkinson^s disease
     Dosage: 100 MILLIGRAM
     Route: 065
  10. LEVODOPA [Suspect]
     Active Substance: LEVODOPA
     Dosage: INCREASED DOSE
     Route: 065
  11. LEVODOPA [Suspect]
     Active Substance: LEVODOPA
     Dosage: 100 MILLIGRAM (LEVODOPA AND BENSERAZIDE (100 MG AND 25 MG FIVE TIMES A DAY)
     Route: 065
  12. LEVODOPA [Suspect]
     Active Substance: LEVODOPA
     Dosage: 100 MILLIGRAM, QD
     Route: 065
  13. SERTRALINE [Suspect]
     Active Substance: SERTRALINE HYDROCHLORIDE
     Indication: Anxiety
     Dosage: 150 MILLIGRAM, QD (150 MG, PER DAY)
     Route: 065
  14. SERTRALINE [Suspect]
     Active Substance: SERTRALINE HYDROCHLORIDE
     Indication: Depression
     Dosage: 125 MILLIGRAM, AM (125 MG IN MORNING)
     Route: 065
  15. QUETIAPINE [Suspect]
     Active Substance: QUETIAPINE
     Indication: Depression
     Dosage: UNK, QD (UPTO 25 MG A DAY)
     Route: 065
  16. QUETIAPINE [Suspect]
     Active Substance: QUETIAPINE
     Dosage: 450 MILLIGRAM, QD (450 MG, PER DAY)
     Route: 065
  17. QUETIAPINE [Suspect]
     Active Substance: QUETIAPINE
     Dosage: 25 MILLIGRAM, HS (25 MG AT NIGHT)
     Route: 065
  18. QUETIAPINE [Suspect]
     Active Substance: QUETIAPINE
     Dosage: 450 MILLIGRAM, QD
     Route: 065
  19. QUETIAPINE [Suspect]
     Active Substance: QUETIAPINE
  20. CLOZAPINE [Suspect]
     Active Substance: CLOZAPINE
     Indication: Psychotic disorder
     Dosage: 25 MILLIGRAM, QD (25 MG, PER DAY, WITH A GRADUAL DOSE TITRATION TO 150 MG/DAY)
     Route: 065
  21. CLOZAPINE [Suspect]
     Active Substance: CLOZAPINE
     Dosage: WITH A GRADUAL DOSE TITRATION TO 150 MG/DAY
     Route: 065
  22. CLOZAPINE [Suspect]
     Active Substance: CLOZAPINE
     Route: 065
  23. ROPINIROLE [Suspect]
     Active Substance: ROPINIROLE
     Indication: Parkinson^s disease
     Dosage: GRADUALLY INCREASING THE DOSE OF ROPINIROLE ON HER OWN (UP TO 20 MG/DAY)
     Route: 065
  24. ROPINIROLE [Suspect]
     Active Substance: ROPINIROLE
     Route: 065
  25. ROPINIROLE [Suspect]
     Active Substance: ROPINIROLE
     Dosage: 20 MILLIGRAM, QD GRADUALLY INCREASING THE DOSE OF ROPINIROLE ON HER OWN (UP TO 20 MG/DAY)
     Route: 065
  26. ROPINIROLE [Suspect]
     Active Substance: ROPINIROLE
     Route: 065
  27. ROPINIROLE [Suspect]
     Active Substance: ROPINIROLE
     Route: 065
  28. ROPINIROLE [Suspect]
     Active Substance: ROPINIROLE
     Route: 065
  29. BENSERAZIDE\LEVODOPA [Suspect]
     Active Substance: BENSERAZIDE\LEVODOPA
     Indication: Parkinson^s disease
     Dosage: LEVODOPA AND BENSERAZIDE (100 MG AND 25 MG FIVE TIMES A DAY)
     Route: 065
  30. MIRTAZAPINE [Suspect]
     Active Substance: MIRTAZAPINE
     Indication: Psychotic disorder
     Route: 065
  31. MIRTAZAPINE [Suspect]
     Active Substance: MIRTAZAPINE
     Route: 065
  32. MIRTAZAPINE [Suspect]
     Active Substance: MIRTAZAPINE
     Route: 065
  33. BENSERAZIDE [Suspect]
     Active Substance: BENSERAZIDE
     Indication: Product used for unknown indication
     Dosage: INCREASED DOSE
     Route: 065
  34. BENSERAZIDE [Suspect]
     Active Substance: BENSERAZIDE
     Dosage: 100 MILLIGRAM, QD (25 MG, 4X PER DAY )
     Route: 065
  35. BENSERAZIDE [Suspect]
     Active Substance: BENSERAZIDE
     Dosage: 25 MILLIGRAM, 5XD
     Route: 065
  36. BENSERAZIDE [Suspect]
     Active Substance: BENSERAZIDE
     Dosage: UNK, LEVODOPA AND BENSERAZIDE (100 MG AND 25 MG FIVE TIMES A DAY
     Route: 065
  37. TRIHEXYPHENIDYL [Suspect]
     Active Substance: TRIHEXYPHENIDYL
     Indication: Product used for unknown indication
     Dosage: 4 MILLIGRAM, QD (UPTO 4 MG/DAY)
     Route: 065
  38. TRIHEXYPHENIDYL [Suspect]
     Active Substance: TRIHEXYPHENIDYL
  39. DIAZEPAM [Concomitant]
     Active Substance: DIAZEPAM
     Indication: Tension
     Dosage: UP TO 10 MG/DAY
  40. DIAZEPAM [Concomitant]
     Active Substance: DIAZEPAM
     Indication: Anxiety
  41. QUETIAPINE [Concomitant]
     Active Substance: QUETIAPINE
     Indication: Product used for unknown indication
  42. TRIHEXYPHENIDYL [Concomitant]
     Active Substance: TRIHEXYPHENIDYL
     Indication: Product used for unknown indication
     Dosage: UPTO 4 MG/DAY

REACTIONS (9)
  - Intentional product misuse [Unknown]
  - Speech disorder [Unknown]
  - Drug ineffective [Unknown]
  - Labelled drug-disease interaction issue [Unknown]
  - Muscle spasms [Unknown]
  - Neutropenia [Unknown]
  - Movement disorder [Unknown]
  - Condition aggravated [Recovering/Resolving]
  - On and off phenomenon [Not Recovered/Not Resolved]
